FAERS Safety Report 5081547-4 (Version None)
Quarter: 2006Q3

REPORT INFORMATION
  Report Type: 
  Country: None (occurrence: None)
  Receive Date: 20060811
  Receipt Date: 20060727
  Transmission Date: 20061208
  Serious: Yes (Hospitalization, Other)
  Sender: FDA-Public Use
  Company Number: 2006S1006933

PATIENT
  Sex: Female

DRUGS (1)
  1. INDOMETHACIN [Suspect]

REACTIONS (7)
  - DRUG DISPENSING ERROR [None]
  - GASTROINTESTINAL DISORDER [None]
  - HEADACHE [None]
  - MYDRIASIS [None]
  - URINARY TRACT INFECTION [None]
  - VERTIGO [None]
  - WRONG DRUG ADMINISTERED [None]
